FAERS Safety Report 20135644 (Version 2)
Quarter: 2021Q4

REPORT INFORMATION
  Report Type: Report from Study
  Country: US (occurrence: US)
  Receive Date: 20211201
  Receipt Date: 20211206
  Transmission Date: 20220303
  Serious: Yes (Other)
  Sender: FDA-Public Use
  Company Number: US-NOVARTISPH-NVSC2019US104617

PATIENT
  Age: 50 Year
  Sex: Female
  Weight: 69.4 kg

DRUGS (7)
  1. LUTATHERA [Suspect]
     Active Substance: LUTETIUM OXODOTREOTIDE LU-177
     Indication: Product used for unknown indication
     Dosage: UNK
     Route: 065
  2. AFINITOR [Suspect]
     Active Substance: EVEROLIMUS
     Indication: Product used for unknown indication
     Dosage: 10 MG, QD
     Route: 048
     Dates: start: 201703
  3. ZOFRAN [Suspect]
     Active Substance: ONDANSETRON HYDROCHLORIDE
     Indication: Product used for unknown indication
     Dosage: 4 MG, QD
     Route: 048
  4. CAPECITABINE [Suspect]
     Active Substance: CAPECITABINE
     Indication: Product used for unknown indication
     Dosage: UNK
     Route: 065
     Dates: start: 201901
  5. TEMOZOLOMIDE [Suspect]
     Active Substance: TEMOZOLOMIDE
     Indication: Product used for unknown indication
     Dosage: UNK
     Route: 065
     Dates: start: 201901
  6. AMLODIPINE [Concomitant]
     Active Substance: AMLODIPINE BESYLATE
     Indication: Product used for unknown indication
     Dosage: UNK
     Route: 065
  7. SODIUM CHLORIDE [Concomitant]
     Active Substance: SODIUM CHLORIDE
     Indication: Product used for unknown indication
     Dosage: UNK
     Route: 065

REACTIONS (15)
  - Metastatic neoplasm [Unknown]
  - Metastases to liver [Unknown]
  - Hepatic cancer metastatic [Unknown]
  - Nausea [Unknown]
  - Obesity [Unknown]
  - Asthma [Unknown]
  - Cardiac disorder [Unknown]
  - Liver disorder [Unknown]
  - Hepatic lesion [Unknown]
  - Weight decreased [Recovered/Resolved]
  - Bladder dilatation [Unknown]
  - Nodule [Unknown]
  - Cholelithiasis [Unknown]
  - Renal cyst [Unknown]
  - Disease progression [Unknown]

NARRATIVE: CASE EVENT DATE: 20190101
